FAERS Safety Report 23161991 (Version 1)
Quarter: 2023Q4

REPORT INFORMATION
  Report Type: Report from Study
  Country: CN (occurrence: CN)
  Receive Date: 20231109
  Receipt Date: 20231109
  Transmission Date: 20240110
  Serious: Yes (Other)
  Sender: FDA-Public Use
  Company Number: CN-Merck Healthcare KGaA-2023485177

PATIENT
  Sex: Female

DRUGS (1)
  1. METFORMIN [Suspect]
     Active Substance: METFORMIN HYDROCHLORIDE
     Indication: Insulin resistance
     Route: 048

REACTIONS (4)
  - Polycystic ovarian syndrome [Unknown]
  - Depressed mood [Unknown]
  - Decreased appetite [Unknown]
  - Weight decreased [Unknown]
